FAERS Safety Report 8908997 (Version 1)
Quarter: 2012Q4

REPORT INFORMATION
  Report Type: 
  Country: US (occurrence: US)
  Receive Date: 20121113
  Receipt Date: 20121113
  Transmission Date: 20130627
  Serious: No
  Sender: FDA-Public Use
  Company Number: US-AMGEN-USASP2012011464

PATIENT
  Age: 61 Year
  Sex: Female
  Weight: 59 kg

DRUGS (9)
  1. ENBREL [Suspect]
     Indication: PRODUCT USED FOR UNKNOWN INDICATION
     Dosage: 50 mg, qwk
  2. LEUCOVORIN CA [Concomitant]
     Dosage: 5 mg, UNK
  3. METHOTREXATE [Concomitant]
     Dosage: 2.5 mg, UNK
  4. VITAMIN E                          /00110501/ [Concomitant]
     Dosage: 1000 IU, UNK
  5. LEVOTHYROXINE [Concomitant]
     Dosage: 100 mug, UNK
  6. CALCIUM CITRATE [Concomitant]
     Dosage: 200 mg, UNK
  7. FISH OIL [Concomitant]
     Dosage: UNK
  8. MULTIVITAMIN                       /00097801/ [Concomitant]
     Dosage: UNK
  9. FOLIC ACID [Concomitant]
     Dosage: 20 mg, UNK

REACTIONS (2)
  - Burning sensation [Recovering/Resolving]
  - Tendonitis [Recovering/Resolving]
